FAERS Safety Report 20612098 (Version 1)
Quarter: 2022Q1

REPORT INFORMATION
  Report Type: Spontaneous
  Country: US (occurrence: US)
  Receive Date: 20220318
  Receipt Date: 20220318
  Transmission Date: 20220423
  Serious: Yes (Hospitalization)
  Sender: FDA-Public Use
  Company Number: US-ABBVIE-21K-163-4205359-00

PATIENT

DRUGS (1)
  1. RINVOQ [Suspect]
     Active Substance: UPADACITINIB
     Indication: Rheumatoid arthritis
     Route: 058

REACTIONS (10)
  - Hospitalisation [Unknown]
  - Blood pressure increased [Unknown]
  - Sciatica [Unknown]
  - Pain [Unknown]
  - Hypertension [Unknown]
  - Pain in extremity [Unknown]
  - Sinus congestion [Unknown]
  - Fatigue [Unknown]
  - Dizziness [Unknown]
  - Pollakiuria [Unknown]
